FAERS Safety Report 9009321 (Version 2)
Quarter: 2013Q1

REPORT INFORMATION
  Report Type: Report from Study
  Country: US (occurrence: US)
  Receive Date: 20130111
  Receipt Date: 20130131
  Transmission Date: 20140127
  Serious: Yes (Hospitalization, Other)
  Sender: FDA-Public Use
  Company Number: US-BRISTOL-MYERS SQUIBB COMPANY-17267642

PATIENT
  Age: 78 Year
  Sex: Male

DRUGS (5)
  1. MDX-1106 [Suspect]
     Indication: MALIGNANT MELANOMA
     Dosage: NO OF COURSES: 03
     Route: 040
     Dates: start: 20121114
  2. IPILIMUMAB [Suspect]
     Indication: MALIGNANT MELANOMA
     Dosage: NO OF COURSES: 03
     Route: 040
     Dates: start: 20121114
  3. AMLODIPINE [Concomitant]
     Dates: start: 20090612
  4. INDOMETHACIN [Concomitant]
     Dates: start: 2002
  5. LUNESTA [Concomitant]
     Dates: start: 20071012

REACTIONS (2)
  - Cerebral ischaemia [Not Recovered/Not Resolved]
  - Fatigue [Not Recovered/Not Resolved]
